FAERS Safety Report 10740490 (Version 1)
Quarter: 2015Q1

REPORT INFORMATION
  Report Type: Spontaneous
  Country: TZ (occurrence: TZ)
  Receive Date: 20150127
  Receipt Date: 20150127
  Transmission Date: 20150721
  Serious: Yes (Death)
  Sender: FDA-Public Use
  Company Number: TZ-CIPLA LTD.-2015TZ00567

PATIENT

DRUGS (5)
  1. LAMIVUDINE/STAVUDINE/NEVIRAPINE [Suspect]
     Active Substance: LAMIVUDINE\NEVIRAPINE\STAVUDINE
     Dosage: 150 MG/40 MG/200 MG TWICE DAILY
  2. EFAVIRENZ [Suspect]
     Active Substance: EFAVIRENZ
     Indication: HIV INFECTION
  3. LAMIVUDINE/STAVUDINE/NEVIRAPINE [Suspect]
     Active Substance: LAMIVUDINE\NEVIRAPINE\STAVUDINE
     Indication: HIV INFECTION
     Dosage: STAVUDINE 40 MG, LAMIVUDINE 150 MG BID AND NEVIRAPINE 200 MG ONCE DAILY FOR THE FIRST TWO WEEKS
  4. ZIDOVUDINE. [Suspect]
     Active Substance: ZIDOVUDINE
     Indication: HIV INFECTION
  5. SULFAMETHOXAZOLE AND TRIMETHOPRIM [Concomitant]
     Active Substance: SULFAMETHOXAZOLE\TRIMETHOPRIM
     Indication: PROPHYLAXIS
     Dosage: 800/ 160 MG THREE TIMES PER WEEK

REACTIONS (1)
  - Anaemia [Fatal]
